FAERS Safety Report 25704927 (Version 1)
Quarter: 2025Q3

REPORT INFORMATION
  Report Type: Report from Study
  Country: US (occurrence: US)
  Receive Date: 20250820
  Receipt Date: 20250820
  Transmission Date: 20251020
  Serious: Yes (Hospitalization, Other)
  Sender: TAKEDA
  Company Number: US-TAKEDA-2025TUS072625

PATIENT
  Sex: Female

DRUGS (1)
  1. LANADELUMAB [Suspect]
     Active Substance: LANADELUMAB
     Indication: Bladder neoplasm
     Dosage: 300 MILLIGRAM, Q2WEEKS
     Dates: start: 20231212

REACTIONS (1)
  - Cerebrovascular accident [Recovering/Resolving]
